FAERS Safety Report 16449554 (Version 2)
Quarter: 2019Q4

REPORT INFORMATION
  Report Type: Spontaneous
  Country: SK (occurrence: SK)
  Receive Date: 20190619
  Receipt Date: 20191225
  Transmission Date: 20200122
  Serious: Yes (Other)
  Sender: FDA-Public Use
  Company Number: SK-ROCHE-2339143

PATIENT
  Age: 57 Year
  Sex: Male

DRUGS (8)
  1. ANOPYRIN [Concomitant]
     Active Substance: ASPIRIN
     Route: 065
  2. SODIUM CHLORIDE. [Concomitant]
     Active Substance: SODIUM CHLORIDE
  3. NEUROL [ALPRAZOLAM] [Concomitant]
  4. APAURIN [Concomitant]
     Active Substance: DIAZEPAM
     Indication: PRODUCT USED FOR UNKNOWN INDICATION
     Dosage: 1/2 AMP BY ADMISSION
     Route: 042
  5. SORTIS [Concomitant]
     Active Substance: ATORVASTATIN
     Route: 065
  6. CAVINTON FORTE [Concomitant]
  7. ACTILYSE [Suspect]
     Active Substance: ALTEPLASE
     Indication: CEREBROVASCULAR ACCIDENT
     Route: 042
     Dates: start: 20190520, end: 20190520
  8. EBRANTIL [URAPIDIL] [Concomitant]
     Active Substance: URAPIDIL

REACTIONS (3)
  - Angioedema [Recovered/Resolved]
  - Skin disorder [Recovered/Resolved]
  - Oedema peripheral [Recovered/Resolved]

NARRATIVE: CASE EVENT DATE: 20190520
